FAERS Safety Report 6927717-9 (Version None)
Quarter: 2010Q3

REPORT INFORMATION
  Report Type: 
  Country: None (occurrence: None)
  Receive Date: 20100817
  Receipt Date: 20100809
  Transmission Date: 20110219
  Serious: Yes (Life-Threatening, Other)
  Sender: FDA-Public Use
  Company Number: PHHY2010US49117

PATIENT
  Sex: Female

DRUGS (6)
  1. RECLAST [Suspect]
     Dosage: UNK
     Dates: start: 20090608
  2. TRAMADOL [Suspect]
     Dosage: 50 MG
  3. PAIN KILLERS [Suspect]
  4. SLEEPING PILLS [Suspect]
  5. AMBIEN [Concomitant]
     Indication: PANIC ATTACK
     Dosage: FOUR TIMES A DAY
  6. XANAX [Concomitant]
     Indication: PANIC ATTACK
     Dosage: FOUR TIMES A DAY

REACTIONS (33)
  - ABASIA [None]
  - ABDOMINAL DISCOMFORT [None]
  - ACTIVITIES OF DAILY LIVING IMPAIRED [None]
  - ASTHENIA [None]
  - BACK PAIN [None]
  - BONE DISORDER [None]
  - DEPRESSION [None]
  - FALL [None]
  - FEELING ABNORMAL [None]
  - HAEMORRHAGE [None]
  - HEAD INJURY [None]
  - HEADACHE [None]
  - HYPERHIDROSIS [None]
  - HYPOKALAEMIA [None]
  - HYPOKINESIA [None]
  - IMPAIRED WORK ABILITY [None]
  - INCORRECT ROUTE OF DRUG ADMINISTRATION [None]
  - INFUSION SITE EROSION [None]
  - INFUSION SITE INFECTION [None]
  - INSOMNIA [None]
  - MOVEMENT DISORDER [None]
  - MUSCULOSKELETAL DISCOMFORT [None]
  - NAUSEA [None]
  - OBESITY [None]
  - PAIN [None]
  - PAIN IN EXTREMITY [None]
  - PANIC ATTACK [None]
  - PARALYSIS [None]
  - PHYSICAL DISABILITY [None]
  - SYNCOPE [None]
  - TOOTH DISORDER [None]
  - TOOTH LOSS [None]
  - TREMOR [None]
